FAERS Safety Report 12798652 (Version 1)
Quarter: 2016Q3

REPORT INFORMATION
  Report Type: Spontaneous
  Country: US (occurrence: US)
  Receive Date: 20160930
  Receipt Date: 20160930
  Transmission Date: 20161109
  Serious: No
  Sender: FDA-Public Use
  Company Number: US-ASTRAZENECA-2016SF03669

PATIENT
  Age: 83 Year
  Sex: Female
  Weight: 59 kg

DRUGS (1)
  1. NEXIUM 24HR [Suspect]
     Active Substance: ESOMEPRAZOLE MAGNESIUM
     Route: 048
     Dates: start: 20160914

REACTIONS (5)
  - Erythema [Unknown]
  - Product use issue [Unknown]
  - Poor quality sleep [Unknown]
  - Nocturia [Unknown]
  - Blood pressure increased [Unknown]

NARRATIVE: CASE EVENT DATE: 20160914
